FAERS Safety Report 25905682 (Version 1)
Quarter: 2025Q4

REPORT INFORMATION
  Report Type: Report from Study
  Country: EU (occurrence: EU)
  Receive Date: 20251010
  Receipt Date: 20251010
  Transmission Date: 20260118
  Serious: Yes (Other)
  Sender: TEVA
  Company Number: EU-TEVA-VS-3379221

PATIENT
  Age: 63 Year
  Sex: Female

DRUGS (4)
  1. TERIPARATIDE [Suspect]
     Active Substance: TERIPARATIDE
     Indication: Osteoporosis
     Route: 065
     Dates: start: 20250121
  2. MINOXIDIL [Concomitant]
     Active Substance: MINOXIDIL
     Indication: Alopecia areata
     Dosage: DOSE: ONE EVERY 24 HOURS; START DATE: SOME TIME AGO; END DATE: CONTINUES
  3. VITAMIN D [Concomitant]
     Active Substance: VITAMIN D NOS
     Indication: Osteoporosis
     Dosage: SUPPLEMENT (CANNOT REMEMBER THE NAME), DOSE: ONE EVERY 24 HOURS; START DATE: SOME TIME AGO; END D...
  4. TYLENOL [Concomitant]
     Active Substance: ACETAMINOPHEN
     Indication: Hypothyroidism
     Dosage: START DATE: SOME TIME AGO; END DATE: CONTINUE

REACTIONS (2)
  - Tooth erosion [Not Recovered/Not Resolved]
  - Tooth discolouration [Not Recovered/Not Resolved]

NARRATIVE: CASE EVENT DATE: 20250101
